FAERS Safety Report 6610055-1 (Version None)
Quarter: 2010Q1

REPORT INFORMATION
  Report Type: 
  Country: None (occurrence: None)
  Receive Date: 20100302
  Receipt Date: 20100215
  Transmission Date: 20100710
  Serious: Yes (Congenital Anomaly)
  Sender: FDA-Public Use
  Company Number: IE-ROCHE-688084

PATIENT

DRUGS (1)
  1. COPEGUS [Suspect]
     Route: 064
     Dates: end: 20041201

REACTIONS (1)
  - GASTROINTESTINAL DISORDER [None]
